FAERS Safety Report 11309246 (Version 4)
Quarter: 2015Q4

REPORT INFORMATION
  Report Type: Report from Study
  Country: FR (occurrence: FR)
  Receive Date: 20150724
  Receipt Date: 20151121
  Transmission Date: 20160304
  Serious: Yes (Death, Hospitalization, Other)
  Sender: FDA-Public Use
  Company Number: FR-BRISTOL-MYERS SQUIBB COMPANY-BMS-2015-047916

PATIENT
  Age: 58 Year
  Sex: Male
  Weight: 67 kg

DRUGS (1)
  1. NIVOLUMAB [Suspect]
     Active Substance: NIVOLUMAB
     Indication: NON-SMALL CELL LUNG CANCER
     Dosage: 200 MG, UNK
     Route: 065
     Dates: start: 20150611

REACTIONS (6)
  - Malignant neoplasm progression [Fatal]
  - Hepatic encephalopathy [Fatal]
  - Hepatotoxicity [Fatal]
  - Renal haemorrhage [Unknown]
  - Coagulation time prolonged [Unknown]
  - Renal failure [Unknown]

NARRATIVE: CASE EVENT DATE: 20150629
